FAERS Safety Report 15274336 (Version 1)
Quarter: 2018Q3

REPORT INFORMATION
  Report Type: Report from Study
  Country: AT (occurrence: AT)
  Receive Date: 20180814
  Receipt Date: 20180814
  Transmission Date: 20181010
  Serious: Yes (Other)
  Sender: FDA-Public Use
  Company Number: AT-TEVA-2018-AT-940673

PATIENT
  Age: 63 Year
  Sex: Female
  Weight: 52.5 kg

DRUGS (30)
  1. GEMCITABINE [Suspect]
     Active Substance: GEMCITABINE\GEMCITABINE HYDROCHLORIDE
     Dosage: 1173 MILLIGRAM/SQ. METER
     Route: 065
     Dates: start: 20171129
  2. GEMCITABINE [Suspect]
     Active Substance: GEMCITABINE\GEMCITABINE HYDROCHLORIDE
     Dosage: 1084 MILLIGRAM/SQ. METER
     Route: 065
     Dates: start: 2017
  3. GEMCITABINE [Suspect]
     Active Substance: GEMCITABINE\GEMCITABINE HYDROCHLORIDE
     Dosage: 1120 MILLIGRAM/SQ. METER
     Route: 065
     Dates: start: 201710
  4. GEMCITABINE [Suspect]
     Active Substance: GEMCITABINE\GEMCITABINE HYDROCHLORIDE
     Dosage: 1084 MILLIGRAM/SQ. METER
     Route: 065
     Dates: start: 20170612
  5. ABRAXANE [Suspect]
     Active Substance: PACLITAXEL
     Dosage: 112 MILLIGRAM/SQ. METER
     Route: 041
     Dates: start: 20170927
  6. GEMCITABINE [Suspect]
     Active Substance: GEMCITABINE\GEMCITABINE HYDROCHLORIDE
     Indication: PANCREATIC CARCINOMA
     Dosage: 1445 MILLIGRAM/SQ. METER
     Route: 065
     Dates: start: 20170515
  7. ABRAXANE [Suspect]
     Active Substance: PACLITAXEL
     Indication: PANCREATIC CARCINOMA
     Dosage: 182 MILLIGRAM/SQ. METER
     Route: 041
     Dates: start: 20170515
  8. FERINJECT [Concomitant]
     Active Substance: FERRIC CARBOXYMALTOSE
     Route: 065
     Dates: start: 20170927
  9. GEMCITABINE [Suspect]
     Active Substance: GEMCITABINE\GEMCITABINE HYDROCHLORIDE
     Dosage: 1191 MILLIGRAM/SQ. METER
     Route: 065
     Dates: start: 201712
  10. GEMCITABINE [Suspect]
     Active Substance: GEMCITABINE\GEMCITABINE HYDROCHLORIDE
     Dosage: 1132 MILLIGRAM/SQ. METER
     Route: 065
     Dates: start: 201709
  11. GEMCITABINE [Suspect]
     Active Substance: GEMCITABINE\GEMCITABINE HYDROCHLORIDE
     Dosage: 1207 MILLIGRAM/SQ. METER
     Route: 065
     Dates: start: 201801
  12. ABRAXANE [Suspect]
     Active Substance: PACLITAXEL
     Dosage: 149 MILLIGRAM/SQ. METER
     Route: 041
     Dates: start: 20170726
  13. ABRAXANE [Suspect]
     Active Substance: PACLITAXEL
     Dosage: 147 MILLIGRAM/SQ. METER
     Route: 041
     Dates: start: 20170828
  14. GEMCITABINE [Suspect]
     Active Substance: GEMCITABINE\GEMCITABINE HYDROCHLORIDE
     Dosage: 1123 MILLIGRAM/SQ. METER
     Route: 065
     Dates: start: 20170927
  15. GEMCITABINE [Suspect]
     Active Substance: GEMCITABINE\GEMCITABINE HYDROCHLORIDE
     Dosage: 1181 MILLIGRAM/SQ. METER
     Route: 065
     Dates: start: 201712
  16. GEMCITABINE [Suspect]
     Active Substance: GEMCITABINE\GEMCITABINE HYDROCHLORIDE
     Dosage: 1201 MILLIGRAM/SQ. METER
     Route: 065
     Dates: start: 201710
  17. ARANESP [Concomitant]
     Active Substance: DARBEPOETIN ALFA
     Indication: PRODUCT USED FOR UNKNOWN INDICATION
     Dosage: 500 MICROGRAM
     Route: 065
  18. GEMCITABINE [Suspect]
     Active Substance: GEMCITABINE\GEMCITABINE HYDROCHLORIDE
     Dosage: 1204 MILLIGRAM/SQ. METER?11?17
     Route: 065
     Dates: start: 201711
  19. GEMCITABINE [Suspect]
     Active Substance: GEMCITABINE\GEMCITABINE HYDROCHLORIDE
     Dosage: 1130 MILLIGRAM/SQ. METER
     Route: 065
     Dates: start: 20170828
  20. FERINJECT [Concomitant]
     Active Substance: FERRIC CARBOXYMALTOSE
     Indication: PRODUCT USED FOR UNKNOWN INDICATION
     Route: 065
     Dates: start: 20170904
  21. GEMCITABINE [Suspect]
     Active Substance: GEMCITABINE\GEMCITABINE HYDROCHLORIDE
     Dosage: 1189 MILLIGRAM/SQ. METER
     Route: 065
     Dates: start: 20171031
  22. CREON [Concomitant]
     Active Substance: PANCRELIPASE AMYLASE\PANCRELIPASE LIPASE\PANCRELIPASE PROTEASE
     Indication: PRODUCT USED FOR UNKNOWN INDICATION
     Dosage: 40000
     Route: 065
  23. GEMCITABINE [Suspect]
     Active Substance: GEMCITABINE\GEMCITABINE HYDROCHLORIDE
     Dosage: 1215 MILLIGRAM/SQ. METER
     Route: 065
     Dates: start: 201711
  24. GEMCITABINE [Suspect]
     Active Substance: GEMCITABINE\GEMCITABINE HYDROCHLORIDE
     Dosage: 1115 MILLIGRAM/SQ. METER
     Route: 065
     Dates: start: 201709
  25. GEMCITABINE [Suspect]
     Active Substance: GEMCITABINE\GEMCITABINE HYDROCHLORIDE
     Dosage: 1133 MILLIGRAM/SQ. METER
     Route: 065
     Dates: start: 201708
  26. ABRAXANE [Suspect]
     Active Substance: PACLITAXEL
     Dosage: 149 MILLIGRAM/SQ. METER
     Route: 041
     Dates: start: 201709
  27. GEMCITABINE [Suspect]
     Active Substance: GEMCITABINE\GEMCITABINE HYDROCHLORIDE
     Dosage: 1181 MILLIGRAM/SQ. METER
     Route: 065
     Dates: start: 20171227
  28. GEMCITABINE [Suspect]
     Active Substance: GEMCITABINE\GEMCITABINE HYDROCHLORIDE
     Dosage: 1175 MILLIGRAM/SQ. METER
     Route: 065
     Dates: start: 201801
  29. GEMCITABINE [Suspect]
     Active Substance: GEMCITABINE\GEMCITABINE HYDROCHLORIDE
     Dosage: 1122 MILLIGRAM/SQ. METER
     Route: 065
     Dates: start: 20170726
  30. ZOFRAN [Concomitant]
     Active Substance: ONDANSETRON HYDROCHLORIDE
     Indication: PRODUCT USED FOR UNKNOWN INDICATION
     Dosage: AS NEEDED
     Route: 065

REACTIONS (4)
  - Neuropathy peripheral [Recovered/Resolved]
  - Pyrexia [Recovered/Resolved]
  - Thrombocytopenia [Recovered/Resolved]
  - Neuropathy peripheral [Recovered/Resolved]

NARRATIVE: CASE EVENT DATE: 20170529
